FAERS Safety Report 13251336 (Version 2)
Quarter: 2017Q1

REPORT INFORMATION
  Report Type: Spontaneous
  Country: US (occurrence: US)
  Receive Date: 20170220
  Receipt Date: 20170309
  Transmission Date: 20170428
  Serious: Yes (Other)
  Sender: FDA-Public Use
  Company Number: US-009507513-1702USA005807

PATIENT
  Age: 54 Year
  Sex: Female
  Weight: 93.4 kg

DRUGS (7)
  1. JANUMET [Suspect]
     Active Substance: METFORMIN HYDROCHLORIDE\SITAGLIPTIN PHOSPHATE
     Indication: DIABETES MELLITUS
     Dosage: 1 TABLET, QD
     Route: 048
  2. AMLODIPINE [Concomitant]
     Active Substance: AMLODIPINE BESYLATE
     Dosage: 5 MG, QD
     Route: 048
  3. HYDROCHLOROTHIAZIDE (+) TRIAMTERENE [Concomitant]
     Active Substance: HYDROCHLOROTHIAZIDE\TRIAMTERENE
     Dosage: 37.5/25 MG PO DAILY
     Route: 048
  4. ZOCOR [Concomitant]
     Active Substance: SIMVASTATIN
     Dosage: 40 MG, QD
     Route: 048
  5. ASPIRIN. [Concomitant]
     Active Substance: ASPIRIN
     Dosage: 81 MG, QD
     Route: 048
  6. LINZESS [Concomitant]
     Active Substance: LINACLOTIDE
     Dosage: 145 MICROGRAM, QD
     Route: 048
  7. OMEPRAZOLE. [Concomitant]
     Active Substance: OMEPRAZOLE
     Dosage: 40 MG PO, DAILY
     Route: 048

REACTIONS (1)
  - Angioedema [Not Recovered/Not Resolved]

NARRATIVE: CASE EVENT DATE: 20160322
